FAERS Safety Report 24996000 (Version 1)
Quarter: 2025Q1

REPORT INFORMATION
  Report Type: Spontaneous
  Country: US (occurrence: US)
  Receive Date: 20250221
  Receipt Date: 20250221
  Transmission Date: 20250408
  Serious: No
  Sender: CATALYST PHARMA
  Company Number: US-CATALYST PHARMACEUTICALS-US-CATA-24-01264

PATIENT
  Sex: Male
  Weight: 17.098 kg

DRUGS (2)
  1. AGAMREE [Suspect]
     Active Substance: VAMOROLONE
     Indication: Duchenne muscular dystrophy
     Dosage: 2.6 ML ONCE A DAY
     Route: 048
     Dates: start: 20240819
  2. IRON [Concomitant]
     Active Substance: IRON
     Indication: Iron deficiency
     Dosage: 75 MG/ML ONCE A DAY
     Route: 065

REACTIONS (8)
  - Hunger [Not Recovered/Not Resolved]
  - Anger [Not Recovered/Not Resolved]
  - Crying [Not Recovered/Not Resolved]
  - Weight increased [Not Recovered/Not Resolved]
  - Irritability [Not Recovered/Not Resolved]
  - Abnormal behaviour [Not Recovered/Not Resolved]
  - Agitation [Not Recovered/Not Resolved]
  - Aggression [Not Recovered/Not Resolved]

NARRATIVE: CASE EVENT DATE: 20240101
